FAERS Safety Report 8121136-8 (Version None)
Quarter: 2012Q1

REPORT INFORMATION
  Report Type: 
  Country: None (occurrence: None)
  Receive Date: 20120208
  Receipt Date: 20120206
  Transmission Date: 20120608
  Serious: No
  Sender: FDA-Public Use
  Company Number: US-BAYER-2012-012052

PATIENT
  Age: 80 Year
  Sex: Male

DRUGS (5)
  1. FISH OIL [Concomitant]
  2. ASPIRIN [Concomitant]
  3. VITAMIN E [Concomitant]
  4. LEVITRA [Suspect]
     Indication: ERECTILE DYSFUNCTION
     Dosage: 20 MG, 1-2 TIMES/WK
     Route: 048
     Dates: start: 20110601
  5. ASCORBIC ACID [Concomitant]

REACTIONS (1)
  - ERECTILE DYSFUNCTION [None]
